FAERS Safety Report 25110801 (Version 1)
Quarter: 2025Q1

REPORT INFORMATION
  Report Type: Spontaneous
  Country: US (occurrence: US)
  Receive Date: 20250324
  Receipt Date: 20250324
  Transmission Date: 20250408
  Serious: Yes (Other)
  Sender: AUROBINDO
  Company Number: US-AUROBINDO-AUR-APL-2025-004930

PATIENT
  Sex: Female

DRUGS (1)
  1. LURASIDONE HYDROCHLORIDE [Suspect]
     Active Substance: LURASIDONE HYDROCHLORIDE
     Indication: Bipolar disorder
     Route: 065
     Dates: start: 202302

REACTIONS (4)
  - Hallucination [Unknown]
  - Feeling abnormal [Unknown]
  - Therapeutic response changed [Unknown]
  - Product substitution issue [Unknown]
